FAERS Safety Report 5708512-5 (Version None)
Quarter: 2008Q2

REPORT INFORMATION
  Report Type: 
  Country: None (occurrence: None)
  Receive Date: 20080417
  Receipt Date: 20080227
  Transmission Date: 20081010
  Serious: No
  Sender: FDA-Public Use
  Company Number: US-BRISTOL-MYERS SQUIBB COMPANY-14011183

PATIENT
  Age: 61 Year
  Sex: Male

DRUGS (9)
  1. TAXOL [Suspect]
     Indication: NON-SMALL CELL LUNG CANCER
     Dosage: 50 MG/M2, FINAL DOSE 100 MG; ALSO GIVEN ON 10-DEC-2007
     Route: 042
     Dates: start: 20071203
  2. CARBOPLATIN [Suspect]
     Dosage: TAKEN ON 3 DEC 2007 AND 10 DEC 2007
     Route: 042
     Dates: start: 20071203
  3. ANZEMET [Suspect]
     Route: 042
  4. DIPHENHYDRAMINE [Suspect]
     Route: 042
  5. PEPCID [Suspect]
     Route: 042
  6. DECADRON [Suspect]
  7. LIPITOR [Concomitant]
  8. NORVASC [Concomitant]
  9. INDAPAMIDE [Concomitant]

REACTIONS (1)
  - HICCUPS [None]
